FAERS Safety Report 20476469 (Version 1)
Quarter: 2022Q1

REPORT INFORMATION
  Report Type: Spontaneous
  Country: BR (occurrence: BR)
  Receive Date: 20220215
  Receipt Date: 20220215
  Transmission Date: 20220423
  Serious: Yes (Death, Hospitalization, Other)
  Sender: FDA-Public Use
  Company Number: BR-TAKEDA-2022TUS008907

PATIENT
  Sex: Female

DRUGS (1)
  1. ICLUSIG [Suspect]
     Active Substance: PONATINIB
     Indication: Chronic myeloid leukaemia
     Dosage: 15 MILLIGRAM
     Route: 065

REACTIONS (5)
  - Mucormycosis [Fatal]
  - Aspergillus infection [Fatal]
  - Bone marrow failure [Fatal]
  - Pancytopenia [Fatal]
  - Pancreatitis [Unknown]
